FAERS Safety Report 17193750 (Version 1)
Quarter: 2019Q4

REPORT INFORMATION
  Report Type: Spontaneous
  Country: US (occurrence: US)
  Receive Date: 20191223
  Receipt Date: 20191223
  Transmission Date: 20200122
  Serious: No
  Sender: FDA-Public Use
  Company Number: US-009507513-1912USA005392

PATIENT
  Age: 54 Year
  Sex: Male

DRUGS (1)
  1. ZEPATIER [Suspect]
     Active Substance: ELBASVIR\GRAZOPREVIR
     Dosage: 50/100 MG, DAILY
     Route: 048
     Dates: start: 201911

REACTIONS (5)
  - Vomiting [Unknown]
  - Nausea [Unknown]
  - Eating disorder [Unknown]
  - Product dose omission [Unknown]
  - Intentional dose omission [Unknown]

NARRATIVE: CASE EVENT DATE: 20191210
